FAERS Safety Report 12291756 (Version 1)
Quarter: 2016Q2

REPORT INFORMATION
  Report Type: Report from Study
  Country: US (occurrence: US)
  Receive Date: 20160421
  Receipt Date: 20160421
  Transmission Date: 20160815
  Serious: No
  Sender: FDA-Public Use
  Company Number: US-AMGEN-USASL2016029775

PATIENT
  Age: 78 Year
  Sex: Female

DRUGS (1)
  1. REPATHA [Suspect]
     Active Substance: EVOLOCUMAB
     Indication: PRODUCT USED FOR UNKNOWN INDICATION
     Dosage: 140 MG, QMO
     Route: 065
     Dates: start: 201512

REACTIONS (5)
  - Cardiac murmur [Unknown]
  - Blood cholesterol increased [Unknown]
  - Blood triglycerides abnormal [Unknown]
  - High density lipoprotein abnormal [Unknown]
  - Muscle spasms [Unknown]

NARRATIVE: CASE EVENT DATE: 201512
